FAERS Safety Report 8130011-4 (Version None)
Quarter: 2011Q4

REPORT INFORMATION
  Report Type: 
  Country: None (occurrence: None)
  Receive Date: 20111227
  Receipt Date: 20111024
  Transmission Date: 20120403
  Serious: No
  Sender: FDA-Public Use
  Company Number: PHEH2011US02483

PATIENT
  Age: 28 Year
  Sex: Male
  Weight: 80.7 kg

DRUGS (3)
  1. FISH OIL (FISH OIL) [Concomitant]
  2. VITAMIN D (ERGOCACIFEROL [Concomitant]
  3. GILENYA [Suspect]
     Indication: RELAPSING-REMITTING MULTIPLE SCLEROSIS
     Dosage: 0.5MG, QD, ORAL
     Route: 048
     Dates: start: 20110812

REACTIONS (4)
  - PHOTOPSIA [None]
  - VISION BLURRED [None]
  - BACK PAIN [None]
  - ABDOMINAL DISCOMFORT [None]
